FAERS Safety Report 20415347 (Version 1)
Quarter: 2022Q1

REPORT INFORMATION
  Report Type: Report from Study
  Country: BR (occurrence: BR)
  Receive Date: 20220202
  Receipt Date: 20220202
  Transmission Date: 20220423
  Serious: Yes (Hospitalization, Other)
  Sender: FDA-Public Use
  Company Number: BR-NOVARTISPH-NVSC2022BR019117

PATIENT
  Age: 62 Year
  Sex: Female

DRUGS (2)
  1. ENTRESTO [Suspect]
     Active Substance: SACUBITRIL\VALSARTAN
     Indication: Cardiac failure
     Dosage: UNK (24/26)
     Route: 065
     Dates: start: 202104, end: 202109
  2. ENTRESTO [Suspect]
     Active Substance: SACUBITRIL\VALSARTAN
     Dosage: UNK, (49/51MG)
     Route: 065
     Dates: start: 202109

REACTIONS (14)
  - Influenza [Recovering/Resolving]
  - Blood pressure decreased [Recovering/Resolving]
  - Syncope [Recovering/Resolving]
  - Arrhythmia [Recovering/Resolving]
  - Hypersensitivity [Recovered/Resolved]
  - Erythema [Unknown]
  - Influenza like illness [Unknown]
  - Malaise [Unknown]
  - Throat irritation [Unknown]
  - Rhinitis [Unknown]
  - Cough [Unknown]
  - Dizziness [Unknown]
  - Wrong technique in product usage process [Unknown]
  - Drug ineffective [Unknown]

NARRATIVE: CASE EVENT DATE: 20210901
